FAERS Safety Report 5935385-8 (Version None)
Quarter: 2008Q4

REPORT INFORMATION
  Report Type: 
  Country: None (occurrence: None)
  Receive Date: 20081028
  Receipt Date: 20081013
  Transmission Date: 20090506
  Serious: Yes (Death, Hospitalization)
  Sender: FDA-Public Use
  Company Number: 100#03#2008-02419

PATIENT
  Age: 71 Year
  Sex: Female

DRUGS (5)
  1. ALENDRONIC ACID (ALENDRONIC ACID) [Suspect]
     Indication: SPINAL COMPRESSION FRACTURE
     Dosage: 70 MG ONCE WEEKLY ORAL
     Route: 048
     Dates: start: 20080219, end: 20080316
  2. HYDRALAZINE HCL [Concomitant]
  3. LANSOPRAZOLE [Concomitant]
  4. LISINOPRIL [Concomitant]
  5. SIMVASTATIN [Concomitant]

REACTIONS (6)
  - ACUTE ABDOMEN [None]
  - DUODENAL ULCER PERFORATION [None]
  - MULTI-ORGAN FAILURE [None]
  - NO THERAPEUTIC RESPONSE [None]
  - PERITONITIS [None]
  - SEPSIS [None]
